FAERS Safety Report 4978841-1 (Version None)
Quarter: 2006Q2

REPORT INFORMATION
  Report Type: 
  Country: None (occurrence: None)
  Receive Date: 20060417
  Receipt Date: 20060405
  Transmission Date: 20061013
  Serious: Yes (Death, Life-Threatening)
  Sender: FDA-Public Use
  Company Number: 2006JP000827

PATIENT
  Age: 70 Year
  Sex: Male
  Weight: 55 kg

DRUGS (7)
  1. TACROLIMUS [Suspect]
     Indication: RHEUMATOID ARTHRITIS
     Dosage: 3 MG, UID/QD, ORAL
     Route: 048
     Dates: start: 20051111
  2. RIMATIL (BUCILLAMINE) TABLET [Suspect]
     Indication: RHEUMATOID ARTHRITIS
     Dosage: 100 MG, BID, ORAL
     Route: 048
     Dates: start: 20040521
  3. VASOLAN (VERAPAMIL HYDROCHLORIDE) TABLET [Suspect]
     Dosage: 40 MG, TID, ORAL
     Route: 048
     Dates: start: 20060210
  4. PREDNISOLONE [Concomitant]
  5. LOXONIN              (LOXOPROFEN SODIUM) [Concomitant]
  6. MAGMITT (MAGNESIUM OXIDE) [Concomitant]
     Dosage: PO
  7. CLARITHROMYCIN [Concomitant]
     Dosage: PO

REACTIONS (8)
  - AMYOTROPHIC LATERAL SCLEROSIS [None]
  - ARRHYTHMIA [None]
  - CONDITION AGGRAVATED [None]
  - MUSCULAR WEAKNESS [None]
  - PNEUMONIA [None]
  - RESPIRATORY PARALYSIS [None]
  - SUPRAVENTRICULAR TACHYCARDIA [None]
  - YELLOW NAIL SYNDROME [None]
